FAERS Safety Report 6184663-9 (Version None)
Quarter: 2009Q2

REPORT INFORMATION
  Report Type: 
  Country: None (occurrence: None)
  Receive Date: 20090508
  Receipt Date: 20090504
  Transmission Date: 20091009
  Serious: Yes (Death)
  Sender: FDA-Public Use
  Company Number: PL-TEVA-193734ISR

PATIENT
  Sex: Male
  Weight: 78 kg

DRUGS (5)
  1. CARBOPLATIN [Suspect]
     Indication: NON-SMALL CELL LUNG CANCER
     Route: 042
     Dates: start: 20090225, end: 20090318
  2. PACLITAXEL [Suspect]
     Indication: NON-SMALL CELL LUNG CANCER
     Route: 042
     Dates: start: 20090225, end: 20090318
  3. AXITINIB [Suspect]
     Route: 048
     Dates: start: 20090225
  4. BUFLOMEDIL HYDROCHLORIDE [Concomitant]
  5. PENTOXIFYLLINE [Concomitant]

REACTIONS (1)
  - DEATH [None]
